FAERS Safety Report 6376749-0 (Version None)
Quarter: 2009Q3

REPORT INFORMATION
  Report Type: 
  Country: None (occurrence: None)
  Receive Date: 20090925
  Receipt Date: 20090917
  Transmission Date: 20100115
  Serious: Yes (Other)
  Sender: FDA-Public Use
  Company Number: US-ROCHE-657631

PATIENT
  Age: 9 Year
  Sex: Female

DRUGS (1)
  1. TAMIFLU [Suspect]
     Dosage: TOOK FIVE DOSES
     Route: 065

REACTIONS (4)
  - HALLUCINATION [None]
  - NAUSEA [None]
  - NIGHTMARE [None]
  - VOMITING [None]
